FAERS Safety Report 7380039-7 (Version None)
Quarter: 2011Q1

REPORT INFORMATION
  Report Type: 
  Country: None (occurrence: None)
  Receive Date: 20110318
  Receipt Date: 20110303
  Transmission Date: 20110831
  Serious: Yes (Death, Hospitalization)
  Sender: FDA-Public Use
  Company Number: JP-2011-10409

PATIENT
  Age: 65 Year
  Sex: Male

DRUGS (6)
  1. AMLODIPINE/LOSARTAN [Concomitant]
  2. DICHLODINE (HYDROCHLOROTHIAZIDE) [Concomitant]
  3. AMLODIPINE [Concomitant]
  4. ASPIRIN [Suspect]
     Indication: CEREBRAL INFARCTION
     Dates: start: 20091024
  5. CILOSTAZOL [Suspect]
     Indication: CEREBRAL INFARCTION
     Dates: start: 20091024
  6. GASMOTIN (MOSAPRIDE CITRATE) [Concomitant]

REACTIONS (8)
  - DIZZINESS [None]
  - FALL [None]
  - NAUSEA [None]
  - ACCIDENTAL DEATH [None]
  - SCRATCH [None]
  - CATARACT [None]
  - ARRHYTHMIA [None]
  - CARDIOVASCULAR DISORDER [None]
